FAERS Safety Report 18155992 (Version 1)
Quarter: 2020Q3

REPORT INFORMATION
  Report Type: Spontaneous
  Country: ES (occurrence: ES)
  Receive Date: 20200817
  Receipt Date: 20200817
  Transmission Date: 20201103
  Serious: Yes (Hospitalization, Other)
  Sender: FDA-Public Use
  Company Number: ES-AUROBINDO-AUR-APL-2020-039230

PATIENT
  Age: 66 Year
  Sex: Female

DRUGS (18)
  1. PIPERACILLIN AND TAZOBACTAM [Concomitant]
     Active Substance: PIPERACILLIN SODIUM\TAZOBACTAM SODIUM
     Indication: PRODUCT USED FOR UNKNOWN INDICATION
     Dosage: 1 DOSAGE FORM, 3 TIMES A DAY
     Route: 048
  2. LINEZOLID. [Suspect]
     Active Substance: LINEZOLID
     Indication: POSTOPERATIVE WOUND INFECTION
     Dosage: 600 MILLIGRAM, TWO TIMES A DAY
     Route: 048
     Dates: start: 202006, end: 20200716
  3. ADIRO [Concomitant]
     Active Substance: ASPIRIN
     Indication: PRODUCT USED FOR UNKNOWN INDICATION
     Dosage: 100 MILLIGRAM, ONCE A DAY
     Route: 048
     Dates: start: 20190701
  4. SOLINITRINA [Concomitant]
     Indication: PRODUCT USED FOR UNKNOWN INDICATION
     Dosage: 0.8 MILLIGRAM, ONCE A DAY
     Route: 060
     Dates: start: 20171005
  5. BISOPROLOL COR SANDOZ [Concomitant]
     Active Substance: BISOPROLOL
     Indication: PRODUCT USED FOR UNKNOWN INDICATION
     Dosage: 2.5 MILLIGRAM, ONCE A DAY
     Route: 048
     Dates: start: 20200709
  6. GABAPENTIN TEVA [Concomitant]
     Active Substance: GABAPENTIN
     Indication: PRODUCT USED FOR UNKNOWN INDICATION
     Dosage: 100 MILLIGRAM, ONCE A DAY
     Route: 048
     Dates: start: 20200604
  7. LANTUS [Concomitant]
     Active Substance: INSULIN GLARGINE
     Indication: PRODUCT USED FOR UNKNOWN INDICATION
     Dosage: 46 INTERNATIONAL UNIT, ONCE A DAY
     Route: 058
     Dates: start: 20200303
  8. ZOLPIDEM TEVAGEN [Concomitant]
     Active Substance: ZOLPIDEM TARTRATE
     Indication: PRODUCT USED FOR UNKNOWN INDICATION
     Dosage: 10 MILLIGRAM, ONCE A DAY
     Route: 048
     Dates: start: 20200610
  9. NOVORAPID [Concomitant]
     Active Substance: INSULIN ASPART
     Indication: PRODUCT USED FOR UNKNOWN INDICATION
     Dosage: 4 INTERNATIONAL UNIT, 3 TIMES A DAY
     Route: 058
     Dates: start: 20200303
  10. TARDYFERON [Concomitant]
     Active Substance: FERROUS SULFATE
     Indication: PRODUCT USED FOR UNKNOWN INDICATION
     Dosage: 80 MILLIGRAM, ONCE A DAY
     Route: 048
     Dates: start: 20140814
  11. OMEPRAZOL KERN PHARMA [Concomitant]
     Indication: PRODUCT USED FOR UNKNOWN INDICATION
     Dosage: 20 MILLIGRAM, ONCE A DAY
     Route: 048
     Dates: start: 20140130
  12. HYDROCHLOROTHIAZIDE. [Concomitant]
     Active Substance: HYDROCHLOROTHIAZIDE
     Indication: PRODUCT USED FOR UNKNOWN INDICATION
     Dosage: 50 MILLIGRAM, ONCE A DAY
     Route: 048
     Dates: start: 20160128
  13. FUROSEMIDE SANDOZ [Concomitant]
     Active Substance: FUROSEMIDE
     Indication: PRODUCT USED FOR UNKNOWN INDICATION
     Dosage: 80 MILLIGRAM, ONCE A DAY
     Route: 048
     Dates: start: 20150901
  14. ROCALTROL [Concomitant]
     Active Substance: CALCITRIOL
     Indication: PRODUCT USED FOR UNKNOWN INDICATION
     Dosage: 0.25 MICROGRAM, EVERY OTHER DAY
     Route: 048
     Dates: start: 20160505
  15. CLEXANE [Suspect]
     Active Substance: ENOXAPARIN SODIUM
     Indication: PRODUCT USED FOR UNKNOWN INDICATION
     Dosage: 60 MILLIGRAM, ONCE A DAY
     Route: 058
     Dates: start: 2020, end: 20200714
  16. CRESTOR [Concomitant]
     Active Substance: ROSUVASTATIN CALCIUM
     Indication: PRODUCT USED FOR UNKNOWN INDICATION
     Dosage: 10 MILLIGRAM, ONCE A DAY
     Route: 048
     Dates: start: 20121004
  17. ALOPURINOL NORMON [Concomitant]
     Active Substance: ALLOPURINOL
     Indication: PRODUCT USED FOR UNKNOWN INDICATION
     Dosage: 100 MILLIGRAM, ONCE A DAY
     Route: 048
     Dates: start: 20191016
  18. PLUSVENT [Concomitant]
     Active Substance: FLUTICASONE PROPIONATE\SALMETEROL XINAFOATE
     Indication: PRODUCT USED FOR UNKNOWN INDICATION
     Dosage: 1 DOSAGE FORM, TWO TIMES A DAY
     Route: 055
     Dates: start: 20141117

REACTIONS (3)
  - Rectal haemorrhage [Recovered/Resolved]
  - Thrombocytopenia [Recovered/Resolved]
  - Anaemia [Not Recovered/Not Resolved]

NARRATIVE: CASE EVENT DATE: 20200714
